FAERS Safety Report 7405801-3 (Version None)
Quarter: 2011Q2

REPORT INFORMATION
  Report Type: 
  Country: None (occurrence: None)
  Receive Date: 20110411
  Receipt Date: 20110404
  Transmission Date: 20111010
  Serious: Yes (Life-Threatening)
  Sender: FDA-Public Use
  Company Number: FR-ROCHE-769319

PATIENT
  Sex: Male

DRUGS (5)
  1. ROCEPHIN [Suspect]
     Route: 042
     Dates: start: 20100820, end: 20100820
  2. TRACRIUM [Suspect]
     Route: 042
     Dates: start: 20100820, end: 20100820
  3. DIPRIVAN [Suspect]
     Route: 042
     Dates: start: 20100820, end: 20100820
  4. SUFENTA PRESERVATIVE FREE [Suspect]
     Route: 042
     Dates: start: 20100820, end: 20100820
  5. HYPNOVEL [Suspect]
     Route: 042
     Dates: start: 20100820, end: 20100820

REACTIONS (2)
  - SHOCK [None]
  - CARDIO-RESPIRATORY ARREST [None]
